FAERS Safety Report 25763691 (Version 1)
Quarter: 2025Q3

REPORT INFORMATION
  Report Type: Spontaneous
  Country: US (occurrence: US)
  Receive Date: 20250905
  Receipt Date: 20250905
  Transmission Date: 20251021
  Serious: No
  Sender: DOMPE FARMACEUTICI
  Company Number: US-FARMAPROD-202410-3780

PATIENT
  Age: 87 Year
  Sex: Female

DRUGS (15)
  1. OXERVATE [Suspect]
     Active Substance: CENEGERMIN-BKBJ
     Indication: Neurotrophic keratopathy
     Route: 047
     Dates: start: 20241022, end: 20241112
  2. OXERVATE [Suspect]
     Active Substance: CENEGERMIN-BKBJ
  3. ELIQUIS [Concomitant]
     Active Substance: APIXABAN
  4. RESTASIS [Concomitant]
     Active Substance: CYCLOSPORINE
  5. PRED FORTE [Concomitant]
     Active Substance: PREDNISOLONE ACETATE
     Route: 061
  6. MURO 128 [Concomitant]
     Active Substance: SODIUM CHLORIDE
     Route: 061
  7. RETAINE PM [Concomitant]
     Active Substance: MINERAL OIL\PETROLATUM
  8. RETAINE MGD [Concomitant]
     Active Substance: LIGHT MINERAL OIL\MINERAL OIL
  9. SYNTHROID [Concomitant]
     Active Substance: LEVOTHYROXINE SODIUM
     Route: 048
  10. TENORMIN [Concomitant]
     Active Substance: ATENOLOL
     Route: 048
  11. VALIUM [Concomitant]
     Active Substance: DIAZEPAM
  12. VALIUM [Concomitant]
     Active Substance: DIAZEPAM
     Route: 048
  13. NM-6603 [Concomitant]
     Active Substance: NM-6603
  14. OFLOXACIN [Concomitant]
     Active Substance: OFLOXACIN
     Route: 061
  15. ERYTHROMYCIN [Concomitant]
     Active Substance: ERYTHROMYCIN

REACTIONS (9)
  - Palpitations [Not Recovered/Not Resolved]
  - Malaise [Unknown]
  - Rash [Not Recovered/Not Resolved]
  - Therapy partial responder [Recovered/Resolved]
  - Eye pain [Not Recovered/Not Resolved]
  - Ocular hyperaemia [Not Recovered/Not Resolved]
  - Vision blurred [Not Recovered/Not Resolved]
  - Urticaria [Unknown]
  - Therapy interrupted [Unknown]

NARRATIVE: CASE EVENT DATE: 20241112
